FAERS Safety Report 20182187 (Version 1)
Quarter: 2021Q4

REPORT INFORMATION
  Report Type: Spontaneous
  Country: NL (occurrence: NL)
  Receive Date: 20211214
  Receipt Date: 20211214
  Transmission Date: 20220303
  Serious: Yes (Other)
  Sender: FDA-Public Use
  Company Number: NL-MLMSERVICE-20211117-3223486-1

PATIENT
  Age: 62 Year
  Sex: Male

DRUGS (4)
  1. PEMETREXED [Suspect]
     Active Substance: PEMETREXED
     Indication: Non-small cell lung cancer metastatic
     Dosage: UNK UNK, CYCLICAL
     Route: 065
     Dates: start: 2018
  2. PREDNISOLONE [Suspect]
     Active Substance: PREDNISOLONE
     Indication: Toxic skin eruption
     Route: 065
     Dates: start: 202001
  3. CARBOPLATIN [Suspect]
     Active Substance: CARBOPLATIN
     Indication: Non-small cell lung cancer metastatic
     Dosage: UNK UNK, UNKNOWN
     Route: 065
     Dates: start: 201803
  4. NIVOLUMAB [Concomitant]
     Active Substance: NIVOLUMAB
     Indication: Non-small cell lung cancer metastatic
     Dosage: UNK UNK, UNKNOWN
     Route: 065
     Dates: start: 201909

REACTIONS (6)
  - Speech disorder [Recovered/Resolved]
  - Swollen tongue [Recovered/Resolved]
  - Visceral leishmaniasis [Recovered/Resolved]
  - Mucocutaneous leishmaniasis [Recovered/Resolved]
  - Condition aggravated [Recovered/Resolved]
  - Weight decreased [Recovered/Resolved]

NARRATIVE: CASE EVENT DATE: 20181201
